FAERS Safety Report 9474616 (Version 1)
Quarter: 2013Q3

REPORT INFORMATION
  Report Type: Spontaneous
  Country: US (occurrence: US)
  Receive Date: 20130823
  Receipt Date: 20130823
  Transmission Date: 20140515
  Serious: No
  Sender: FDA-Public Use
  Company Number: US-009507513-1308USA006944

PATIENT
  Age: 45 Year
  Sex: Male

DRUGS (1)
  1. TEMODAR [Suspect]
     Indication: OLIGODENDROGLIOMA
     Dosage: 140 MG, QD
     Route: 048

REACTIONS (3)
  - Polydipsia [Recovered/Resolved]
  - Polyuria [Recovered/Resolved]
  - Off label use [Unknown]
